FAERS Safety Report 26178331 (Version 3)
Quarter: 2025Q4

REPORT INFORMATION
  Report Type: Spontaneous
  Country: JP (occurrence: JP)
  Receive Date: 20251219
  Receipt Date: 20251228
  Transmission Date: 20260117
  Serious: Yes (Death, Other)
  Sender: SANOFI AVENTIS
  Company Number: JP-SAKK-2025SA375730AA

PATIENT
  Age: 82 Year
  Sex: Male

DRUGS (3)
  1. SARCLISA [Suspect]
     Active Substance: ISATUXIMAB-IRFC
     Indication: Plasma cell myeloma
     Dosage: 10 MG/KG
     Route: 041
  2. POMALIDOMIDE [Suspect]
     Active Substance: POMALIDOMIDE
     Indication: Plasma cell myeloma
     Dosage: 2 MG, QD
     Route: 065
  3. DEXAMETHASONE [Concomitant]
     Active Substance: DEXAMETHASONE
     Indication: Plasma cell myeloma
     Route: 065

REACTIONS (3)
  - Multiple organ dysfunction syndrome [Fatal]
  - COVID-19 [Fatal]
  - Neutrophil count decreased [Fatal]
